FAERS Safety Report 25617246 (Version 1)
Quarter: 2025Q3

REPORT INFORMATION
  Report Type: Spontaneous
  Country: US (occurrence: US)
  Receive Date: 20250729
  Receipt Date: 20250729
  Transmission Date: 20251020
  Serious: No
  Sender: GLENMARK
  Company Number: US-GLENMARK PHARMACEUTICALS-2024GMK095918

PATIENT

DRUGS (4)
  1. OLOPATADINE HYDROCHLORIDE OPHTHALMIC SOLUTION 0.1 % [Suspect]
     Active Substance: OLOPATADINE HYDROCHLORIDE
     Indication: Dry eye
     Route: 065
  2. OLOPATADINE HYDROCHLORIDE OPHTHALMIC SOLUTION 0.1 % [Suspect]
     Active Substance: OLOPATADINE HYDROCHLORIDE
     Indication: Eye pruritus
  3. OLOPATADINE HYDROCHLORIDE OPHTHALMIC SOLUTION 0.1 % [Suspect]
     Active Substance: OLOPATADINE HYDROCHLORIDE
     Indication: Ocular hyperaemia
  4. OLOPATADINE HYDROCHLORIDE OPHTHALMIC SOLUTION 0.1 % [Suspect]
     Active Substance: OLOPATADINE HYDROCHLORIDE
     Indication: Eye irritation

REACTIONS (1)
  - Drug effective for unapproved indication [Unknown]
